FAERS Safety Report 15736553 (Version 2)
Quarter: 2019Q2

REPORT INFORMATION
  Report Type: Report from Study
  Country: US (occurrence: US)
  Receive Date: 20181218
  Receipt Date: 20190505
  Transmission Date: 20190711
  Serious: No
  Sender: FDA-Public Use
  Company Number: PHEH2018US052218

PATIENT
  Sex: Male

DRUGS (2)
  1. COSENTYX [Suspect]
     Active Substance: SECUKINUMAB
     Dosage: 300 MG, QW
     Route: 058
     Dates: start: 20181116
  2. COSENTYX [Suspect]
     Active Substance: SECUKINUMAB
     Indication: PSORIASIS
     Dosage: 300 MG, QMO
     Route: 058
     Dates: start: 20150409

REACTIONS (5)
  - Scab [Unknown]
  - Pain [Unknown]
  - Limb injury [Unknown]
  - Therapeutic response shortened [Unknown]
  - Nail injury [Unknown]
